FAERS Safety Report 9825467 (Version 2)
Quarter: 2014Q1

REPORT INFORMATION
  Report Type: Spontaneous
  Country: US (occurrence: US)
  Receive Date: 20140117
  Receipt Date: 20140207
  Transmission Date: 20141002
  Serious: No
  Sender: FDA-Public Use
  Company Number: US-PFIZER INC-2014013743

PATIENT
  Age: 53 Year
  Sex: 0

DRUGS (7)
  1. NEURONTIN [Suspect]
     Dosage: UNK
  2. NITROGLYCERIN [Suspect]
     Dosage: UNK
  3. KEFLEX [Suspect]
     Dosage: UNK
  4. ZOCOR [Suspect]
     Dosage: UNK
  5. ASPIRIN [Suspect]
     Dosage: UNK
  6. CRESTOR [Suspect]
     Dosage: UNK
  7. INFLUENZA VACCINE [Suspect]
     Dosage: UNK

REACTIONS (1)
  - No adverse event [Unknown]
